FAERS Safety Report 8316262-4 (Version None)
Quarter: 2012Q2

REPORT INFORMATION
  Report Type: 
  Country: None (occurrence: None)
  Receive Date: 20120427
  Receipt Date: 20120423
  Transmission Date: 20120825
  Serious: No
  Sender: FDA-Public Use
  Company Number: US-PFIZER INC-2012101386

PATIENT
  Sex: Male

DRUGS (2)
  1. PRISTIQ [Suspect]
     Dosage: UNK
  2. NEURONTIN [Suspect]
     Dosage: UNK
     Route: 048

REACTIONS (2)
  - PERSONALITY CHANGE [None]
  - DEPRESSION [None]
